FAERS Safety Report 4458378-9 (Version None)
Quarter: 2004Q3

REPORT INFORMATION
  Report Type: 
  Country: None (occurrence: None)
  Receive Date: 20040922
  Receipt Date: 20040907
  Transmission Date: 20050211
  Serious: Yes (Other)
  Sender: FDA-Public Use
  Company Number: JP_040904382

PATIENT
  Age: 25 Year
  Sex: Female

DRUGS (3)
  1. ZYPREXA [Suspect]
     Indication: SCHIZOPHRENIA
     Dosage: 5 MG DAY
     Dates: start: 20040821, end: 20040830
  2. DEPAS9ETIZOLAM) [Concomitant]
  3. ROHYPNOL(FLUNITRAZEPAM) [Concomitant]

REACTIONS (1)
  - BLOOD THYROID STIMULATING HORMONE DECREASED [None]
